FAERS Safety Report 8838311 (Version 1)
Quarter: 2012Q4

REPORT INFORMATION
  Report Type: 
  Country: CA (occurrence: CA)
  Receive Date: 20121012
  Receipt Date: 20121012
  Transmission Date: 20130627
  Serious: Yes (Hospitalization)
  Sender: FDA-Public Use
  Company Number: CA-GLAXOSMITHKLINE-A0995841A

PATIENT
  Age: 65 None
  Sex: Female

DRUGS (6)
  1. TYKERB [Suspect]
     Indication: BREAST CANCER METASTATIC
     Dosage: 1250MG Per day
     Route: 048
     Dates: start: 20120823, end: 20120909
  2. XELODA [Suspect]
     Indication: PRODUCT USED FOR UNKNOWN INDICATION
     Dosage: 1000MG Twice per day
     Route: 065
     Dates: start: 20120823, end: 20120909
  3. FEMARA [Concomitant]
     Dosage: 2.5MG Per day
     Route: 065
     Dates: start: 20120418, end: 20120822
  4. SYNTHROID [Concomitant]
  5. VITAMIN D [Concomitant]
  6. CALCIUM [Concomitant]

REACTIONS (4)
  - Diarrhoea [Recovered/Resolved]
  - Dehydration [Unknown]
  - Dyspepsia [Unknown]
  - Asthenia [Unknown]
